FAERS Safety Report 4914865-8 (Version None)
Quarter: 2006Q1

REPORT INFORMATION
  Report Type: 
  Country: None (occurrence: None)
  Receive Date: 20060217
  Receipt Date: 20060207
  Transmission Date: 20060701
  Serious: Yes (Death, Life-Threatening, Hospitalization, Other)
  Sender: FDA-Public Use
  Company Number: US-JNJFOC-20051104999

PATIENT
  Sex: Female
  Weight: 99.79 kg

DRUGS (8)
  1. DURAGESIC-100 [Suspect]
     Route: 062
  2. DURAGESIC-100 [Suspect]
     Route: 062
  3. CLOTRIMAZOLE [Concomitant]
  4. ESOMEPRAZOLE [Concomitant]
  5. FLUOXETINE [Concomitant]
  6. FUROSEMIDE [Concomitant]
  7. PREDNISONE [Concomitant]
  8. TRAZODONE [Concomitant]

REACTIONS (51)
  - ABNORMAL BEHAVIOUR [None]
  - ACUTE RESPIRATORY DISTRESS SYNDROME [None]
  - ANGIOPATHY [None]
  - ATRIOVENTRICULAR BLOCK COMPLETE [None]
  - BACTEROIDES INFECTION [None]
  - BLISTER [None]
  - BLOOD CULTURE POSITIVE [None]
  - BRONCHITIS [None]
  - BRONCHOPNEUMONIA [None]
  - BURNS SECOND DEGREE [None]
  - CANDIDIASIS [None]
  - CARDIOMEGALY [None]
  - CHEST PAIN [None]
  - COMA [None]
  - CONFUSIONAL STATE [None]
  - COUGH [None]
  - DEPRESSED LEVEL OF CONSCIOUSNESS [None]
  - DEVICE FAILURE [None]
  - DIFFUSE ALVEOLAR DAMAGE [None]
  - DISTURBANCE IN ATTENTION [None]
  - DYSPNOEA [None]
  - FATIGUE [None]
  - GOITRE [None]
  - HYPOTENSION [None]
  - KLEBSIELLA INFECTION [None]
  - LUNG NEOPLASM [None]
  - MENTAL STATUS CHANGES [None]
  - NEURALGIA [None]
  - OVERDOSE [None]
  - PAIN [None]
  - PELVIC FRACTURE [None]
  - PHARMACEUTICAL PRODUCT COMPLAINT [None]
  - PNEUMONIA PNEUMOCOCCAL [None]
  - POOR QUALITY DRUG ADMINISTERED [None]
  - PRODUCTIVE COUGH [None]
  - PULMONARY MASS [None]
  - PULMONARY OEDEMA [None]
  - PULSE ABSENT [None]
  - PUPIL FIXED [None]
  - RENAL FAILURE ACUTE [None]
  - RESPIRATORY FAILURE [None]
  - SCIATICA [None]
  - SEPTIC SHOCK [None]
  - SKIN BURNING SENSATION [None]
  - SOMNOLENCE [None]
  - STAPHYLOCOCCAL INFECTION [None]
  - THERAPY NON-RESPONDER [None]
  - UPPER RESPIRATORY TRACT INFECTION [None]
  - URINARY INCONTINENCE [None]
  - VISION BLURRED [None]
  - WHEEZING [None]
